FAERS Safety Report 18780089 (Version 1)
Quarter: 2021Q1

REPORT INFORMATION
  Report Type: Spontaneous
  Country: US (occurrence: US)
  Receive Date: 20210122
  Receipt Date: 20210122
  Transmission Date: 20210419
  Serious: Yes (Death, Hospitalization, Other)
  Sender: FDA-Public Use
  Company Number: None

PATIENT
  Age: 60 Year
  Sex: Female
  Weight: 117.4 kg

DRUGS (22)
  1. ALBUMIN [Concomitant]
     Active Substance: ALBUMIN HUMAN
  2. ALTEPLASE. [Concomitant]
     Active Substance: ALTEPLASE
  3. IRON/VITAMIN C [Concomitant]
  4. FUROSEMIDE. [Concomitant]
     Active Substance: FUROSEMIDE
  5. HYDROMORPHONE [Concomitant]
     Active Substance: HYDROMORPHONE
  6. REMDESIVIR. [Suspect]
     Active Substance: REMDESIVIR
     Indication: SARS-COV-2 TEST POSITIVE
     Route: 040
  7. FERROUS SULFATE. [Concomitant]
     Active Substance: FERROUS SULFATE
  8. LACTATED RINGERS SOLUTION [Concomitant]
     Active Substance: CALCIUM CHLORIDE\POTASSIUM CHLORIDE\SODIUM CHLORIDE\SODIUM LACTATE
  9. LIDOCAINE. [Concomitant]
     Active Substance: LIDOCAINE
  10. ALBUTEROL. [Concomitant]
     Active Substance: ALBUTEROL
  11. CALCIUM GLUCONATE. [Concomitant]
     Active Substance: CALCIUM GLUCONATE
  12. CEFTRIAXONE. [Concomitant]
     Active Substance: CEFTRIAXONE
  13. HEPARIN [Concomitant]
     Active Substance: HEPARIN SODIUM
  14. DEXTROSE. [Concomitant]
     Active Substance: DEXTROSE
  15. DOCUSATE [Concomitant]
     Active Substance: DOCUSATE
  16. FENTANYL. [Concomitant]
     Active Substance: FENTANYL
  17. GLYCOPYRROLATE. [Concomitant]
     Active Substance: GLYCOPYRROLATE
  18. INSULIN (REGULAR) [Concomitant]
     Active Substance: INSULIN NOS
  19. ACETAMINOPHEN. [Concomitant]
     Active Substance: ACETAMINOPHEN
  20. TPN [Concomitant]
     Active Substance: AMINO ACIDS\DEXTROSE\ELECTROLYTES NOS\SOYBEAN OIL
  21. CHLORHEXIDINE [Concomitant]
     Active Substance: CHLORHEXIDINE
  22. LORAZEPAM. [Concomitant]
     Active Substance: LORAZEPAM

REACTIONS (8)
  - Intra-abdominal haematoma [None]
  - Deep vein thrombosis [None]
  - Lactic acidosis [None]
  - Gastrointestinal necrosis [None]
  - Acute kidney injury [None]
  - Ileal ulcer perforation [None]
  - Pneumatosis [None]
  - Tachycardia [None]

NARRATIVE: CASE EVENT DATE: 20210112
